FAERS Safety Report 9535566 (Version 1)
Quarter: 2013Q3

REPORT INFORMATION
  Report Type: Report from Study
  Country: US (occurrence: US)
  Receive Date: 20130919
  Receipt Date: 20130919
  Transmission Date: 20140515
  Serious: Yes (Hospitalization)
  Sender: FDA-Public Use
  Company Number: US-ROCHE-1277646

PATIENT
  Sex: Female

DRUGS (11)
  1. LUCENTIS [Suspect]
     Indication: MACULAR OEDEMA
     Dosage: OS
     Route: 050
  2. LUCENTIS [Suspect]
     Indication: DIABETIC RETINOPATHY
     Route: 050
     Dates: end: 20121029
  3. LUCENTIS [Suspect]
     Indication: MACULAR ISCHAEMIA
     Route: 050
     Dates: start: 20121204
  4. LUCENTIS [Suspect]
     Route: 050
     Dates: start: 20130121
  5. LUCENTIS [Suspect]
     Route: 050
     Dates: start: 20130225
  6. ERYTHROMYCIN [Concomitant]
  7. INSULIN HUMALOG [Concomitant]
  8. LANTUS [Concomitant]
  9. CYMBALTA [Concomitant]
  10. LEXAPRO [Concomitant]
  11. JANUVIA [Concomitant]

REACTIONS (2)
  - Back pain [Unknown]
  - Visual acuity reduced [Not Recovered/Not Resolved]
